FAERS Safety Report 16416680 (Version 1)
Quarter: 2019Q2

REPORT INFORMATION
  Report Type: Spontaneous
  Country: US (occurrence: US)
  Receive Date: 20190611
  Receipt Date: 20190611
  Transmission Date: 20190711
  Serious: Yes (Other)
  Sender: FDA-Public Use
  Company Number: US-HONG KONG KING-FRIEND INDUSTRIAL COMPANY-2019NKF00006

PATIENT
  Age: 62 Year
  Sex: Male

DRUGS (2)
  1. GEMCITABINE [Suspect]
     Active Substance: GEMCITABINE\GEMCITABINE HYDROCHLORIDE
     Indication: PANCREATIC CARCINOMA
     Route: 065
  2. CHEMOTHERAPY AGENTS [Concomitant]
     Route: 065

REACTIONS (3)
  - End stage renal disease [Not Recovered/Not Resolved]
  - Thrombotic microangiopathy [Not Recovered/Not Resolved]
  - Malignant renal hypertension [Not Recovered/Not Resolved]
